FAERS Safety Report 6039007-X (Version None)
Quarter: 2009Q1

REPORT INFORMATION
  Report Type: 
  Country: None (occurrence: None)
  Receive Date: 20090115
  Receipt Date: 20090105
  Transmission Date: 20090719
  Serious: Yes (Death, Other)
  Sender: FDA-Public Use
  Company Number: US-WYE-H07623209

PATIENT
  Age: 23 Year

DRUGS (3)
  1. TYGACIL [Suspect]
     Indication: ACINETOBACTER INFECTION
     Dosage: 50 MG 1 TIME/12 H
     Route: 042
  2. TYGACIL [Suspect]
     Indication: PNEUMONIA BACTERIAL
  3. IMIPENEM AND CILASTATIN SODIUM [Concomitant]
     Indication: ACINETOBACTER INFECTION
     Route: 042

REACTIONS (3)
  - ACINETOBACTER INFECTION [None]
  - DRUG INEFFECTIVE [None]
  - PNEUMONIA BACTERIAL [None]
